FAERS Safety Report 7369909-3 (Version None)
Quarter: 2011Q1

REPORT INFORMATION
  Report Type: 
  Country: None (occurrence: None)
  Receive Date: 20110323
  Receipt Date: 20110314
  Transmission Date: 20110831
  Serious: Yes (Hospitalization, Other)
  Sender: FDA-Public Use
  Company Number: FR-ASTRAZENECA-2011SE15298

PATIENT
  Age: 28 Year
  Sex: Female
  Weight: 40 kg

DRUGS (1)
  1. NEXIUM [Suspect]
     Indication: GASTRIC ULCER
     Route: 048
     Dates: start: 20110304, end: 20110313

REACTIONS (3)
  - VISUAL IMPAIRMENT [None]
  - PYREXIA [None]
  - HEARING IMPAIRED [None]
